FAERS Safety Report 14991367 (Version 2)
Quarter: 2018Q3

REPORT INFORMATION
  Report Type: Spontaneous
  Country: US (occurrence: US)
  Receive Date: 20180608
  Receipt Date: 20180904
  Transmission Date: 20181010
  Serious: Yes (Other)
  Sender: FDA-Public Use
  Company Number: US-BAYER-2018-106464

PATIENT
  Age: 34 Year
  Sex: Female
  Weight: 71.2 kg

DRUGS (2)
  1. ANTISEPTIC SOLUTION [Concomitant]
     Indication: INFECTION PROPHYLAXIS
     Dosage: UNK
     Route: 061
     Dates: start: 20180316, end: 20180316
  2. MIRENA [Suspect]
     Active Substance: LEVONORGESTREL
     Indication: CONTRACEPTION
     Dosage: 20 MCG/24HR, CONT
     Route: 015
     Dates: start: 20180316, end: 20180527

REACTIONS (5)
  - Abdominal pain lower [None]
  - Medical device discomfort [None]
  - Menorrhagia [Recovered/Resolved]
  - Device expulsion [None]
  - Post procedural haemorrhage [None]

NARRATIVE: CASE EVENT DATE: 20180316
